FAERS Safety Report 9512344 (Version 1)
Quarter: 2013Q3

REPORT INFORMATION
  Report Type: Spontaneous
  Country: US (occurrence: US)
  Receive Date: 20130910
  Receipt Date: 20130910
  Transmission Date: 20140515
  Serious: No
  Sender: FDA-Public Use
  Company Number: -SAAVPROD-BMS18942391

PATIENT
  Age: 51 Year
  Sex: Female

DRUGS (1)
  1. AVAPRO TABS [Suspect]
     Indication: HYPERTENSION
     Dates: start: 201305

REACTIONS (2)
  - Blood pressure increased [Recovered/Resolved]
  - Presyncope [Unknown]
